FAERS Safety Report 10400923 (Version 3)
Quarter: 2015Q1

REPORT INFORMATION
  Report Type: Report from Study
  Country: US (occurrence: US)
  Receive Date: 20140821
  Receipt Date: 20150323
  Transmission Date: 20150720
  Serious: No
  Sender: FDA-Public Use
  Company Number: US-GILEAD-2014-0112722

PATIENT
  Age: 53 Year
  Sex: Female

DRUGS (4)
  1. AMBRISENTAN [Suspect]
     Active Substance: AMBRISENTAN
     Indication: DRUG ABUSER
  2. AMBRISENTAN [Suspect]
     Active Substance: AMBRISENTAN
     Indication: PULMONARY HYPERTENSION
     Dosage: 5 MG, QD
     Route: 065
     Dates: start: 20101214
  3. ADCIRCA [Concomitant]
     Active Substance: TADALAFIL
     Indication: PRODUCT USED FOR UNKNOWN INDICATION
     Route: 065
  4. XARELTO [Concomitant]
     Active Substance: RIVAROXABAN
     Indication: PRODUCT USED FOR UNKNOWN INDICATION
     Route: 065

REACTIONS (6)
  - Headache [Unknown]
  - Menopausal symptoms [Unknown]
  - Flushing [Unknown]
  - Oedema [Unknown]
  - Oedema peripheral [Unknown]
  - Dyspepsia [Unknown]
